FAERS Safety Report 10721549 (Version 2)
Quarter: 2015Q1

REPORT INFORMATION
  Report Type: Report from Study
  Country: US (occurrence: US)
  Receive Date: 20150119
  Receipt Date: 20150217
  Transmission Date: 20150721
  Serious: No
  Sender: FDA-Public Use
  Company Number: US-AMGEN INC.-USASL2015002921

PATIENT
  Age: 64 Year
  Sex: Male

DRUGS (2)
  1. LEDIPASVIR W/SOFOSBUVIR [Concomitant]
     Dosage: UNK
  2. ENBREL [Suspect]
     Active Substance: ETANERCEPT
     Indication: MULTIPLE SCLEROSIS
     Dosage: 50 MG, QWK
     Route: 058
     Dates: start: 201305

REACTIONS (3)
  - Fatigue [Recovering/Resolving]
  - Headache [Recovering/Resolving]
  - Diarrhoea [Unknown]

NARRATIVE: CASE EVENT DATE: 20141230
